FAERS Safety Report 10297454 (Version 3)
Quarter: 2014Q4

REPORT INFORMATION
  Report Type: Spontaneous
  Country: MX (occurrence: MX)
  Receive Date: 20140711
  Receipt Date: 20141030
  Transmission Date: 20150528
  Serious: Yes (Other)
  Sender: FDA-Public Use
  Company Number: MX-ELI_LILLY_AND_COMPANY-MX201407001036

PATIENT
  Age: 10 Year
  Sex: Female

DRUGS (3)
  1. STRATTERA [Suspect]
     Active Substance: ATOMOXETINE HYDROCHLORIDE
     Dosage: 40 MG, UNKNOWN
     Route: 065
     Dates: start: 201409, end: 201409
  2. CITRATE [Concomitant]
     Active Substance: CITRIC ACID MONOHYDRATE
     Indication: RENAL TUBULAR ACIDOSIS
     Dosage: UNK, UNKNOWN
     Route: 065
  3. STRATTERA [Suspect]
     Active Substance: ATOMOXETINE HYDROCHLORIDE
     Indication: ATTENTION DEFICIT/HYPERACTIVITY DISORDER
     Dosage: 25 MG, UNKNOWN
     Route: 065
     Dates: start: 2009, end: 201407

REACTIONS (5)
  - Pulmonary hypertension [Recovered/Resolved]
  - Syncope [Recovered/Resolved]
  - Drug ineffective [Unknown]
  - Bronchial hyperreactivity [Recovered/Resolved]
  - Chest pain [Recovered/Resolved]

NARRATIVE: CASE EVENT DATE: 201406
